FAERS Safety Report 7250579-X (Version None)
Quarter: 2011Q1

REPORT INFORMATION
  Report Type: 
  Country: None (occurrence: None)
  Receive Date: 20110128
  Receipt Date: 20110114
  Transmission Date: 20110831
  Serious: Yes (Other)
  Sender: FDA-Public Use
  Company Number: DE-ROCHE-755503

PATIENT
  Sex: Female

DRUGS (2)
  1. AVASTIN [Suspect]
     Indication: BREAST CANCER
     Route: 065
     Dates: start: 20100201
  2. TAXOTERE [Concomitant]
     Indication: BREAST CANCER
     Dates: start: 20100201

REACTIONS (1)
  - PLEURAL EFFUSION [None]
